FAERS Safety Report 26085159 (Version 1)
Quarter: 2025Q4

REPORT INFORMATION
  Report Type: Spontaneous
  Country: US (occurrence: US)
  Receive Date: 20251125
  Receipt Date: 20251125
  Transmission Date: 20260117
  Serious: No
  Sender: SANDOZ
  Company Number: US-SANDOZ-SDZ2025US087336

PATIENT
  Sex: Female

DRUGS (17)
  1. CLARITHROMYCIN [Suspect]
     Active Substance: CLARITHROMYCIN
     Indication: Product used for unknown indication
     Route: 065
  2. CLINDAMYCIN [Suspect]
     Active Substance: CLINDAMYCIN
     Indication: Product used for unknown indication
     Route: 065
  3. PENICILLIN V POTASSIUM [Suspect]
     Active Substance: PENICILLIN V POTASSIUM
     Indication: Product used for unknown indication
     Route: 065
  4. ALBUTEROL [Concomitant]
     Active Substance: ALBUTEROL
     Indication: Product used for unknown indication
     Dosage: 90 UG (CTUATION INHL HFAA, INHALE 2 PUFFS BY MOUTH EVERY 6 HOURS AS NEEDED FOR COUGH OR SHORTNESS OF
     Route: 055
  5. ALBUTEROL [Concomitant]
     Active Substance: ALBUTEROL
     Dosage: ,5 MG /3 ML (0.083 %) INHL NEB SOLN, USE 3 ML VIA NEBULIZER EVERY 6 HOURS AS NEEDED FOR COUGH OR SHO
     Route: 055
  6. AZELASTINE [Concomitant]
     Active Substance: AZELASTINE
     Indication: Product used for unknown indication
     Dosage: 137 UG, BID ((0.1%) NASL SPRAY, USE 2 SPRAYS IN EACH NOSTRIL 2 TIMES A DAY AS NEEDED, DISP: 30 ML, R
     Route: 065
  7. BUDESONIDE\FORMOTEROL [Concomitant]
     Active Substance: BUDESONIDE\FORMOTEROL
     Indication: Product used for unknown indication
     Dosage: 160-4.5 MCG/ACTUATION INHL HFAA, INHALE 2 PUFFS BY MOUTH 2 TIMES A DAY(SYMBICORT)
     Route: 065
  8. CHOLECALCIFEROL [Concomitant]
     Active Substance: CHOLECALCIFEROL
     Indication: Product used for unknown indication
     Dosage: 25 UG ,QD( (1,000 UNIT) ORAL CAP, TAKE 1 CAPSULE BY MOUTH DAILY, DISP: 120 CAPSULE, RFL: 2)(VITAMIN
     Route: 048
  9. CLOTRIMAZOLE [Concomitant]
     Active Substance: CLOTRIMAZOLE
     Indication: Product used for unknown indication
     Dosage: BID ( 1% TOP CREA, APPLY TO AFFECTED AREA(S) 2 TIMES A DAY, DISP: 28 G. RFL: 3)(LOTRIMIN AF/MYCELEX)
     Route: 061
  10. CYCLOBENZAPRINE [Concomitant]
     Active Substance: CYCLOBENZAPRINE
     Indication: Product used for unknown indication
     Dosage: 5 MG, TID, (TAKE 1 TABLET BY MOUTH 3 TIMES A DAY (PATIENT NOT TAKING: REPORTED ON 10/21/2025), DISP:
     Route: 048
  11. DILTIAZEM [Concomitant]
     Active Substance: DILTIAZEM
     Indication: Product used for unknown indication
     Dosage: 240 MG, QD (24HR SR CAP, TAKE 1 CAPSULE BY MOUTH DAILY, DISP: 100 CAPSULE, RFL: 0) (CARDIZEM CD)
     Route: 048
  12. HYDROXYCHLOROQUINE [Concomitant]
     Active Substance: HYDROXYCHLOROQUINE
     Indication: Product used for unknown indication
     Dosage: 200 MG, QD,(TAKE 1 TABLET BY MOUTH DAILY, DISP: 100 TABLET, RFL: 0)(PLAQUENIL)
     Route: 048
  13. IBUPROFEN [Concomitant]
     Active Substance: IBUPROFEN
     Indication: Product used for unknown indication
     Dosage: 600 MG, (TAKE 1 TABLET BY MOUTH EVERY 8 HOURS AS NEEDED FOR PAIN. TAKE WITH FOOD (PATIENT NOT TAKING
     Route: 048
  14. LOSARTAN [Concomitant]
     Active Substance: LOSARTAN
     Indication: Product used for unknown indication
     Dosage: QD, TAKE 1 TABLET BY MOUTH DAILY TO CONTROL BLOOD PRESSURE AND/OR PREVENT STROKES AND HELP THE HEART
     Route: 048
  15. PREDNISONE [Concomitant]
     Active Substance: PREDNISONE
     Indication: Product used for unknown indication
     Dosage: 20 MG, BID (TAKE 2 TABLETS BY MOUTH DAILY FOR 5 DAYS (PATIENT NOT TAKING: DISP: 10 TABLET, RFL: 0) (
     Route: 048
  16. PREDNISONE [Concomitant]
     Active Substance: PREDNISONE
     Dosage: 5 MG, QD ( TAKE 1 TABLET BY MOUTH DAILY - OK TO FILL EARLY. (PATIENT NOT TAKING: REPORTED ON 10/21/2
     Route: 048
  17. SUMATRIPTAN [Concomitant]
     Active Substance: SUMATRIPTAN
     Indication: Product used for unknown indication
     Dosage: 50 MG (TAKE 1 TABLET BY MOUTH AT ONSET OF MIGRAINE HEADACHE. MAY REPEAT 1 TIME AFTER 2 HOURS IF MIGR
     Route: 048

REACTIONS (5)
  - Drug resistance [Unknown]
  - Dyspnoea [Unknown]
  - Asthma [Unknown]
  - Rash [Unknown]
  - Urticaria [Unknown]
